FAERS Safety Report 9631985 (Version 1)
Quarter: 2013Q4

REPORT INFORMATION
  Report Type: Spontaneous
  Country: US (occurrence: None)
  Receive Date: 20131017
  Receipt Date: 20131017
  Transmission Date: 20140711
  Serious: Yes (Disabling, Other)
  Sender: FDA-Public Use
  Company Number: None

PATIENT
  Age: 59 Year
  Sex: Female
  Weight: 72.12 kg

DRUGS (2)
  1. MONTELUKAST [Suspect]
     Indication: ASTHMA
     Dosage: 1 PILL ONCE DAILY
     Route: 048
     Dates: start: 20130731, end: 20131016
  2. MONTELUKAST [Suspect]
     Indication: COUGH
     Dosage: 1 PILL ONCE DAILY
     Route: 048
     Dates: start: 20130731, end: 20131016

REACTIONS (3)
  - Product substitution issue [None]
  - Urticaria [None]
  - Pruritus [None]
